FAERS Safety Report 4707518-2 (Version None)
Quarter: 2005Q3

REPORT INFORMATION
  Report Type: 
  Country: None (occurrence: None)
  Receive Date: 20050701
  Receipt Date: 20050621
  Transmission Date: 20060218
  Serious: Yes (Hospitalization)
  Sender: FDA-Public Use
  Company Number: 2005040567

PATIENT
  Age: 66 Year
  Sex: Female
  Weight: 65.5 kg

DRUGS (9)
  1. ALDACTONE [Suspect]
     Indication: ILL-DEFINED DISORDER
     Dosage: 25 MG (DAILY), ORAL
     Route: 048
     Dates: end: 20041205
  2. CHOROQUINE PHOSPHATE(CHLOROQUINE PHOSPHATE) [Suspect]
     Indication: ILL-DEFINED DISORDER
     Dosage: 1 DF (DAILY), ORAL
     Route: 048
     Dates: start: 20041017, end: 20041205
  3. DIGOXIN [Concomitant]
     Indication: ILL-DEFINED DISORDER
     Dosage: 0.12 MG (DAILY), ORAL
     Route: 048
     Dates: end: 20041205
  4. VASTAREL (TRIMETAZIDINE HYDROCHLORIDE) [Suspect]
     Indication: ILL-DEFINED DISORDER
     Dosage: 70 MG (35 MG, BID ), ORAL
     Route: 048
     Dates: end: 20041205
  5. SAVARINE (CHLOROQUINE, PROGUANIL HYDROCHLORIDE) [Suspect]
     Indication: ILL-DEFINED DISORDER
     Dosage: 1 DF (DAILY) , ORAL
     Route: 048
     Dates: start: 20041017, end: 20041205
  6. CORDARONE [Concomitant]
  7. PREVISCAN (FLUINDIONE) [Concomitant]
  8. ATENOLOL [Concomitant]
  9. FENOFIBRATE [Concomitant]

REACTIONS (13)
  - BLOOD PRESSURE DIASTOLIC DECREASED [None]
  - BLOOD PRESSURE SYSTOLIC INCREASED [None]
  - BRADYCARDIA [None]
  - CARDIOACTIVE DRUG LEVEL INCREASED [None]
  - CYTOLYTIC HEPATITIS [None]
  - DEHYDRATION [None]
  - DRUG HYPERSENSITIVITY [None]
  - HEPATIC INFARCTION [None]
  - HEPATITIS ACUTE [None]
  - HEPATOMEGALY [None]
  - OVERDOSE [None]
  - RENAL FAILURE ACUTE [None]
  - RENAL ISCHAEMIA [None]
